FAERS Safety Report 8618676-1 (Version None)
Quarter: 2012Q3

REPORT INFORMATION
  Report Type: 
  Country: None (occurrence: None)
  Receive Date: 20120814
  Receipt Date: 20120814
  Transmission Date: 20120928
  Serious: Yes (Life-Threatening, Hospitalization)
  Sender: FDA-Public Use
  Company Number: None

PATIENT
  Age: 14 Year
  Sex: Female
  Weight: 67.7 kg

DRUGS (3)
  1. INSULIN CARTRIDGE [Concomitant]
  2. INSULIN GLULISINE 100 UNIT/ML APIDRA-SANOFI-AVENTIS [Suspect]
     Indication: DIABETES MELLITUS
     Dosage: VARIES CONTINUOUS SQ
     Route: 058
  3. INSULIN GLULISINE 100 UNIT/ML APIDRA- SANOFI-AVENTIS [Suspect]
     Indication: DIABETES MELLITUS
     Dosage: VARIES CONTINUOUS

REACTIONS (7)
  - PRODUCT QUALITY ISSUE [None]
  - VOMITING [None]
  - MALAISE [None]
  - DECREASED ACTIVITY [None]
  - DRUG EFFECT DECREASED [None]
  - WRONG TECHNIQUE IN DRUG USAGE PROCESS [None]
  - DIABETIC KETOACIDOSIS [None]
